FAERS Safety Report 6824359-0 (Version None)
Quarter: 2010Q3

REPORT INFORMATION
  Report Type: 
  Country: None (occurrence: None)
  Receive Date: 20100708
  Receipt Date: 20061024
  Transmission Date: 20110219
  Serious: No
  Sender: FDA-Public Use
  Company Number: US-PFIZER INC-2006130379

PATIENT
  Sex: Female

DRUGS (14)
  1. CHANTIX [Suspect]
     Indication: SMOKING CESSATION THERAPY
     Dates: start: 20060901
  2. PLAVIX [Concomitant]
  3. NITROSTAT [Concomitant]
  4. HYDROCHLOROTHIAZIDE [Concomitant]
  5. POTASSIUM CHLORIDE [Concomitant]
  6. TOPROL-XL [Concomitant]
  7. NIACIN [Concomitant]
  8. LOVAZA [Concomitant]
  9. RESTORIL [Concomitant]
  10. XANAX [Concomitant]
  11. VERAPAMIL [Concomitant]
  12. ZOLOFT [Concomitant]
  13. ULTRACET [Concomitant]
  14. REQUIP [Concomitant]

REACTIONS (13)
  - ARTHRALGIA [None]
  - CHEST PAIN [None]
  - CONTUSION [None]
  - DIZZINESS [None]
  - FALL [None]
  - FATIGUE [None]
  - INSOMNIA [None]
  - LETHARGY [None]
  - NAUSEA [None]
  - OEDEMA PERIPHERAL [None]
  - PALPITATIONS [None]
  - RESTLESS LEGS SYNDROME [None]
  - SYNCOPE [None]
